FAERS Safety Report 12241615 (Version 1)
Quarter: 2016Q2

REPORT INFORMATION
  Report Type: Spontaneous
  Country: US (occurrence: US)
  Receive Date: 20160406
  Receipt Date: 20160406
  Transmission Date: 20160815
  Serious: No
  Sender: FDA-Public Use
  Company Number: US-ASTRAZENECA-2016SE33100

PATIENT
  Age: 853 Month
  Sex: Male
  Weight: 137 kg

DRUGS (3)
  1. BYETTA [Suspect]
     Active Substance: EXENATIDE
     Indication: TYPE 2 DIABETES MELLITUS
     Dosage: 250 MCG / 1.2 ML, TWO TIMES A DAY
     Route: 058
     Dates: start: 201603
  2. METFORMIN [Concomitant]
     Active Substance: METFORMIN HYDROCHLORIDE
     Route: 048
  3. JANUVIA [Concomitant]
     Active Substance: SITAGLIPTIN PHOSPHATE

REACTIONS (1)
  - Blood glucose increased [Not Recovered/Not Resolved]

NARRATIVE: CASE EVENT DATE: 201603
